FAERS Safety Report 18747905 (Version 1)
Quarter: 2021Q1

REPORT INFORMATION
  Report Type: Spontaneous
  Country: US (occurrence: US)
  Receive Date: 20210115
  Receipt Date: 20210115
  Transmission Date: 20210419
  Serious: Yes (Death, Hospitalization)
  Sender: FDA-Public Use
  Company Number: US-PFIZER INC-2021017845

PATIENT
  Age: 42 Year
  Sex: Male

DRUGS (14)
  1. COCAINE [Suspect]
     Active Substance: COCAINE
     Dosage: UNK (INHALATION/NASAL)
     Route: 055
  2. MORPHINE [Suspect]
     Active Substance: MORPHINE
     Dosage: UNK (INHALATION/NASAL)
     Route: 055
  3. ZIPRASIDONE HCL [Suspect]
     Active Substance: ZIPRASIDONE HYDROCHLORIDE
     Dosage: UNK (INGESTION)
     Route: 048
  4. TOPIRAMATE. [Suspect]
     Active Substance: TOPIRAMATE
     Dosage: UNK (INHALATION/NASAL)
     Route: 055
  5. QUETIAPINE. [Suspect]
     Active Substance: QUETIAPINE
     Dosage: UNK (INHALATION/NASAL)
     Route: 055
  6. FENTANYL. [Suspect]
     Active Substance: FENTANYL
     Dosage: UNK (INHALATION/NASAL)
     Route: 055
  7. TOPIRAMATE. [Suspect]
     Active Substance: TOPIRAMATE
     Dosage: UNK (INGESTION)
     Route: 048
  8. QUETIAPINE. [Suspect]
     Active Substance: QUETIAPINE
     Dosage: UNK (INGESTION)
     Route: 048
  9. MORPHINE [Suspect]
     Active Substance: MORPHINE
     Dosage: UNK (INGESTION)
     Route: 048
  10. COCAINE [Suspect]
     Active Substance: COCAINE
     Dosage: UNK (INGESTION)
     Route: 048
  11. ZIPRASIDONE HCL [Suspect]
     Active Substance: ZIPRASIDONE HYDROCHLORIDE
     Dosage: UNK (INHALATION/NASAL)
     Route: 055
  12. METHAMPHETAMINE HCL [Suspect]
     Active Substance: METHAMPHETAMINE HYDROCHLORIDE
     Dosage: UNK (INGESTION)
     Route: 048
  13. METHAMPHETAMINE HCL [Suspect]
     Active Substance: METHAMPHETAMINE HYDROCHLORIDE
     Dosage: UNK (INHALATION/NASAL)
  14. FENTANYL. [Suspect]
     Active Substance: FENTANYL
     Dosage: UNK (INGESTION)
     Route: 048

REACTIONS (1)
  - Completed suicide [Fatal]

NARRATIVE: CASE EVENT DATE: 2019
